FAERS Safety Report 24582495 (Version 1)
Quarter: 2024Q4

REPORT INFORMATION
  Report Type: Report from Study
  Country: NL (occurrence: NL)
  Receive Date: 20241106
  Receipt Date: 20241106
  Transmission Date: 20250115
  Serious: Yes (Death, Life-Threatening, Other)
  Sender: ABBVIE
  Company Number: NL-ABBVIE-5987086

PATIENT
  Sex: Male

DRUGS (9)
  1. CARBIDOPA\LEVODOPA [Suspect]
     Active Substance: CARBIDOPA\LEVODOPA
     Indication: Parkinson^s disease
     Dosage: BIR: 0.98 ML/H, HIR: 0.98ML/H, LIR: 0.55 ML/H, ED: 0.15 ML; REMAINS AT 24 HOURS
     Route: 058
     Dates: start: 20240610, end: 20240610
  2. CARBIDOPA\LEVODOPA [Suspect]
     Active Substance: CARBIDOPA\LEVODOPA
     Dosage: BIR: 1.01 ML/H, HIR: 1.01 ML/H, LIR: 0.65 ML/H, ED: 0.30 ML; REMAINS AT 24 HOURS
     Route: 058
     Dates: start: 20240927, end: 20241001
  3. CARBIDOPA\LEVODOPA [Suspect]
     Active Substance: CARBIDOPA\LEVODOPA
     Dosage: BIR: 1.01 ML/H, HIR: 1.01 ML/H, LIR: 0.61 ML/H, ED: 0.30 ML; REMAINS AT 24 HOURS
     Route: 058
     Dates: start: 20241007
  4. CARBIDOPA\LEVODOPA [Suspect]
     Active Substance: CARBIDOPA\LEVODOPA
     Dosage: BIR: 1.01 ML/H, HIR: 1.01 ML/H, LIR: 0.58 ML/H, ED: 0.30 ML; REMAINS AT 24 HOURS
     Route: 058
     Dates: start: 20241001, end: 20241004
  5. CARBIDOPA\LEVODOPA [Suspect]
     Active Substance: CARBIDOPA\LEVODOPA
     Dosage: BIR: 0.98ML/H,  LIR: 0.52ML/H, ED: 0.15ML:REMAINS AT 24 HOURS
     Route: 058
     Dates: start: 20240605, end: 20240610
  6. CARBIDOPA\LEVODOPA [Suspect]
     Active Substance: CARBIDOPA\LEVODOPA
     Dosage: BIR: 1.01 ML/H, HIR: 1.01 ML/H, LIR: 0.58 ML/H, ED: 0.30 ML; REMAINS AT 24 HOURS
     Route: 058
     Dates: start: 20240729, end: 20240927
  7. CARBIDOPA\LEVODOPA [Suspect]
     Active Substance: CARBIDOPA\LEVODOPA
     Dosage: BIR: 1.01 ML/H, HIR: 1.01 ML/H, LIR: 0.58 ML/H, ED: 0.30 ML; REMAINS AT 24 HOURS
     Route: 058
     Dates: start: 20240703, end: 20240729
  8. CARBIDOPA\LEVODOPA [Suspect]
     Active Substance: CARBIDOPA\LEVODOPA
     Dosage: BIR: 1.01 ML/H, HIR: 1.01 ML/H, LIR: 0.61 ML/H, ED: 0.30 ML; REMAINS AT 24 HOURS
     Route: 058
     Dates: start: 20241004, end: 20241007
  9. CARBIDOPA\LEVODOPA [Suspect]
     Active Substance: CARBIDOPA\LEVODOPA
     Dosage: BIR: 0.98 ML/H, HIR: 0.98ML/H, LIR: 0.55 ML/H, ED: 0.20 ML; REMAINS AT 24 HOURS
     Route: 058
     Dates: start: 20240610, end: 20240703

REACTIONS (9)
  - Oesophageal cancer metastatic [Fatal]
  - General physical health deterioration [Not Recovered/Not Resolved]
  - Hypersomnia [Not Recovered/Not Resolved]
  - Weight decreased [Not Recovered/Not Resolved]
  - Terminal state [Not Recovered/Not Resolved]
  - Oesophageal carcinoma [Not Recovered/Not Resolved]
  - Bedridden [Not Recovered/Not Resolved]
  - Metastatic gastric cancer [Fatal]
  - Gastric cancer [Not Recovered/Not Resolved]

NARRATIVE: CASE EVENT DATE: 20240101
